FAERS Safety Report 9682801 (Version 2)
Quarter: 2013Q4

REPORT INFORMATION
  Report Type: Report from Study
  Country: VE (occurrence: VE)
  Receive Date: 20131112
  Receipt Date: 20131122
  Transmission Date: 20140711
  Serious: Yes (Hospitalization)
  Sender: FDA-Public Use
  Company Number: PHHY2013VE127578

PATIENT
  Age: 78 Year
  Sex: Female

DRUGS (11)
  1. XOLAIR [Suspect]
     Indication: ASTHMA
     Dosage: 150 MG, MONTHLY
     Route: 058
     Dates: start: 201302
  2. XOLAIR [Suspect]
     Dosage: UNK
     Route: 058
     Dates: start: 201310, end: 201310
  3. FORADIL [Suspect]
     Indication: ASTHMA
     Dosage: 1 DF, DAILY
  4. FORADIL [Suspect]
     Dosage: UNK
     Dates: start: 20131106, end: 20131106
  5. MIFLONIDE [Suspect]
     Indication: ASTHMA
     Dosage: 400 UG, DAILY
  6. MIFLONIDE [Suspect]
     Dosage: UNK
     Dates: end: 20131106
  7. ANTIBIOTICS [Suspect]
     Indication: RESPIRATORY TRACT INFECTION BACTERIAL
     Dosage: UNK
  8. MICARDIS [Concomitant]
     Indication: HYPERTENSION
     Dosage: UNK
  9. AZOPT [Concomitant]
     Indication: INTRAOCULAR PRESSURE INCREASED
     Dosage: UNK
  10. LUMIGAN [Concomitant]
     Indication: INTRAOCULAR PRESSURE INCREASED
     Dosage: UNK
  11. ALOVENT [Concomitant]
     Indication: ASTHMA
     Dosage: UNK

REACTIONS (4)
  - Respiratory tract infection bacterial [Recovered/Resolved]
  - Dizziness [Recovered/Resolved]
  - Headache [Recovered/Resolved]
  - Increased upper airway secretion [Unknown]
